FAERS Safety Report 5707300-3 (Version None)
Quarter: 2008Q2

REPORT INFORMATION
  Report Type: 
  Country: None (occurrence: None)
  Receive Date: 20080416
  Receipt Date: 20080408
  Transmission Date: 20081010
  Serious: Yes (Hospitalization)
  Sender: FDA-Public Use
  Company Number: KR-JNJFOC-20080401975

PATIENT
  Sex: Female
  Weight: 67 kg

DRUGS (1)
  1. PALIPERIDONE ER [Suspect]
     Indication: SCHIZOPHRENIA
     Route: 048

REACTIONS (1)
  - INSOMNIA [None]
